FAERS Safety Report 7830182-0 (Version None)
Quarter: 2011Q4

REPORT INFORMATION
  Report Type: 
  Country: None (occurrence: None)
  Receive Date: 20111021
  Receipt Date: 20111012
  Transmission Date: 20120403
  Serious: No
  Sender: FDA-Public Use
  Company Number: PHHY2011US60434

PATIENT
  Sex: Female
  Weight: 67 kg

DRUGS (13)
  1. ZIBREN [Concomitant]
     Dosage: UNK UKN, UNK
  2. TASIGNA [Suspect]
     Indication: CHRONIC MYELOID LEUKAEMIA
     Dosage: 400 MG, BID
     Route: 048
     Dates: start: 20110513
  3. ACCUPRIL [Concomitant]
     Dosage: UNK UKN, UNK
  4. CLARITIN [Concomitant]
     Dosage: UNK UKN, UNK
  5. LORTAB [Concomitant]
     Dosage: UNK UKN, UNK
  6. PEPCID [Concomitant]
     Dosage: UNK UKN, UNK
  7. ASPIRIN [Concomitant]
     Dosage: UNK UKN, UNK
  8. ALLOPURINOL [Concomitant]
     Dosage: UNK UKN, UNK
  9. THERAGRAN-M [Concomitant]
     Dosage: UNK UKN, UNK
  10. ATENOLOL [Concomitant]
     Dosage: UNK UKN, UNK
  11. STARLIX [Concomitant]
     Dosage: UNK UKN, UNK
  12. FERROUS SULFATE TAB [Concomitant]
     Dosage: UNK UKN, UNK
  13. SIMVASTATIN [Concomitant]
     Dosage: UNK UKN, UNK

REACTIONS (17)
  - RASH [None]
  - FLUID RETENTION [None]
  - ORTHOPNOEA [None]
  - VOMITING [None]
  - SWELLING [None]
  - HEART RATE INCREASED [None]
  - HAEMOGLOBIN DECREASED [None]
  - JOINT SWELLING [None]
  - ABDOMINAL DISTENSION [None]
  - DYSPNOEA [None]
  - HEADACHE [None]
  - NAUSEA [None]
  - NIGHT SWEATS [None]
  - DYSPNOEA EXERTIONAL [None]
  - ANAEMIA [None]
  - CHILLS [None]
  - DRUG HYPERSENSITIVITY [None]
